FAERS Safety Report 23030913 (Version 1)
Quarter: 2023Q4

REPORT INFORMATION
  Report Type: Spontaneous
  Country: GB (occurrence: GB)
  Receive Date: 20231005
  Receipt Date: 20231005
  Transmission Date: 20240109
  Serious: Yes (Other)
  Sender: FDA-Public Use
  Company Number: None

PATIENT
  Age: 75 Year
  Sex: Female
  Weight: 89 kg

DRUGS (9)
  1. ROSUVASTATIN CALCIUM [Suspect]
     Active Substance: ROSUVASTATIN CALCIUM
     Indication: Product used for unknown indication
     Dates: start: 20230623
  2. AMLODIPINE [Concomitant]
     Active Substance: AMLODIPINE BESYLATE
     Indication: Product used for unknown indication
     Dates: start: 20180613
  3. BLEPHACLEAN [Concomitant]
     Indication: Product used for unknown indication
     Dosage: USE AS DIRECTED
     Dates: start: 20211122
  4. ESTRADIOL [Concomitant]
     Active Substance: ESTRADIOL
     Indication: Product used for unknown indication
     Route: 067
     Dates: start: 20180613
  5. FUROSEMIDE [Concomitant]
     Active Substance: FUROSEMIDE
     Indication: Product used for unknown indication
     Dosage: EACH MORNING
     Dates: start: 20220613
  6. Hylo-tear [Concomitant]
     Indication: Product used for unknown indication
     Dosage: USE 1-2 DROPS FOUR TIMES A DAY
     Dates: start: 20211122
  7. ISPAGHULA EXTRACT\PSYLLIUM [Concomitant]
     Active Substance: HERBALS\PLANTAGO OVATA SEED\PLANTAGO SEED
     Indication: Product used for unknown indication
     Dosage: TAKE 1 -2 SACHETS DAILY AS NEEDED
     Dates: start: 20220302
  8. LISINOPRIL [Concomitant]
     Active Substance: LISINOPRIL
     Indication: Product used for unknown indication
     Dates: start: 20180613
  9. Macrogol Compound [Concomitant]
     Indication: Constipation
     Dosage: TAKE ONE OR TWO SACHETS DAILY
     Dates: start: 20210614

REACTIONS (3)
  - Malaise [Unknown]
  - Dizziness [Recovered/Resolved]
  - Myalgia [Recovered/Resolved]
